FAERS Safety Report 10250247 (Version 1)
Quarter: 2014Q2

REPORT INFORMATION
  Report Type: Spontaneous
  Country: US (occurrence: US)
  Receive Date: 20140620
  Receipt Date: 20140620
  Transmission Date: 20141212
  Serious: Yes (Other)
  Sender: FDA-Public Use
  Company Number: US-JNJFOC-20140609840

PATIENT
  Age: 67 Year
  Sex: Male
  Weight: 108.86 kg

DRUGS (7)
  1. XARELTO [Suspect]
     Indication: CEREBROVASCULAR ACCIDENT PROPHYLAXIS
     Route: 048
     Dates: start: 2012, end: 20140612
  2. XARELTO [Suspect]
     Indication: ATRIAL FIBRILLATION
     Route: 048
     Dates: start: 2012, end: 20140612
  3. INVOKANA [Suspect]
     Indication: DIABETES MELLITUS
     Route: 065
  4. CRESTOR [Concomitant]
     Route: 065
  5. DILTIAZEM [Concomitant]
     Route: 065
  6. LASIX [Concomitant]
     Route: 065
  7. LANTUS [Concomitant]
     Route: 065

REACTIONS (1)
  - Haemoglobin decreased [Unknown]
